FAERS Safety Report 13330218 (Version 1)
Quarter: 2017Q1

REPORT INFORMATION
  Report Type: Spontaneous
  Country: CA (occurrence: CA)
  Receive Date: 20170314
  Receipt Date: 20170314
  Transmission Date: 20170428
  Serious: Yes (Hospitalization, Disabling, Other)
  Sender: FDA-Public Use
  Company Number: CA-TEVA-747778ACC

PATIENT
  Age: 7 Year
  Sex: Male
  Weight: 21 kg

DRUGS (7)
  1. DINUTUXIMAB [Suspect]
     Active Substance: DINUTUXIMAB
     Route: 042
  2. MELPHALAN [Suspect]
     Active Substance: MELPHALAN
     Route: 042
  3. CYCLOPHOSPHAMIDE. [Concomitant]
     Active Substance: CYCLOPHOSPHAMIDE
  4. VINCRISTINE SULFATE. [Suspect]
     Active Substance: VINCRISTINE SULFATE
     Route: 042
  5. CARBOPLATIN. [Suspect]
     Active Substance: CARBOPLATIN
     Route: 042
  6. ETOPOSIDE. [Suspect]
     Active Substance: ETOPOSIDE
     Indication: NEUROBLASTOMA
     Route: 042
  7. CISPLATIN INJECTION [Suspect]
     Active Substance: CISPLATIN
     Route: 042

REACTIONS (7)
  - Tendon injury [Unknown]
  - Neuralgia [Unknown]
  - Pain in jaw [Unknown]
  - Pain in extremity [Unknown]
  - Gait disturbance [Unknown]
  - Hyporeflexia [Unknown]
  - Neuropathy peripheral [Unknown]
